FAERS Safety Report 11689087 (Version 1)
Quarter: 2015Q4

REPORT INFORMATION
  Report Type: Spontaneous
  Country: US (occurrence: US)
  Receive Date: 20151102
  Receipt Date: 20151102
  Transmission Date: 20160304
  Serious: Yes (Other)
  Sender: FDA-Public Use
  Company Number: US-APOTEX-2015AP012968

PATIENT
  Age: 61 Year
  Sex: Female
  Weight: 114 kg

DRUGS (7)
  1. LYRICA [Suspect]
     Active Substance: PREGABALIN
     Indication: MYALGIA
     Dosage: UNK
     Route: 065
     Dates: start: 20140709
  2. VITAMINS NOS [Concomitant]
     Active Substance: VITAMINS
     Indication: MUSCLE SPASMS
     Route: 065
  3. IBUPROFEN. [Suspect]
     Active Substance: IBUPROFEN
     Indication: ARTHRITIS
     Route: 065
  4. VESICARE [Concomitant]
     Active Substance: SOLIFENACIN SUCCINATE
     Indication: PRODUCT USED FOR UNKNOWN INDICATION
     Dosage: 5 MG, QD
     Route: 065
  5. TRAMADOL HYDROCHLORIDE. [Suspect]
     Active Substance: TRAMADOL HYDROCHLORIDE
     Indication: PAIN
     Route: 065
  6. FLEXERIL [Suspect]
     Active Substance: CYCLOBENZAPRINE HYDROCHLORIDE
     Indication: MUSCLE SPASMS
     Route: 065
  7. MELOXICAM. [Suspect]
     Active Substance: MELOXICAM
     Indication: ARTHRITIS
     Route: 065

REACTIONS (9)
  - Hyperchlorhydria [Unknown]
  - Back pain [Unknown]
  - Fall [Unknown]
  - Myalgia [Unknown]
  - Drug effect decreased [Unknown]
  - Pain [Unknown]
  - Spinal fracture [Unknown]
  - Gait disturbance [Unknown]
  - Back injury [Unknown]

NARRATIVE: CASE EVENT DATE: 201208
